FAERS Safety Report 6261061-0 (Version None)
Quarter: 2009Q3

REPORT INFORMATION
  Report Type: 
  Country: None (occurrence: None)
  Receive Date: 20090707
  Receipt Date: 20090625
  Transmission Date: 20100115
  Serious: Yes (Other)
  Sender: FDA-Public Use
  Company Number: 2009AP002585

PATIENT
  Sex: Female

DRUGS (3)
  1. PAROXETINE HCL [Suspect]
     Dosage: 20 MG; PO
     Route: 048
  2. NEFAZODONE HCL [Suspect]
  3. SERTRALUINE HYDROCHLORIDE TABLETS [Suspect]

REACTIONS (21)
  - ANAEMIA [None]
  - ARTHRALGIA [None]
  - BLOOD PRESSURE INCREASED [None]
  - BONE PAIN [None]
  - DEPRESSION [None]
  - DISSOCIATION [None]
  - DRUG INTERACTION [None]
  - DRUG WITHDRAWAL SYNDROME [None]
  - FEELING COLD [None]
  - HEADACHE [None]
  - HYPOAESTHESIA [None]
  - MUSCLE SPASMS [None]
  - MUSCULAR WEAKNESS [None]
  - MUSCULOSKELETAL STIFFNESS [None]
  - MYALGIA [None]
  - NEUROTOXICITY [None]
  - PAIN [None]
  - PANIC ATTACK [None]
  - POLYMENORRHOEA [None]
  - RENAL PAIN [None]
  - SEROTONIN SYNDROME [None]
